FAERS Safety Report 24528970 (Version 1)
Quarter: 2024Q4

REPORT INFORMATION
  Report Type: Spontaneous
  Country: US (occurrence: None)
  Receive Date: 20241018
  Receipt Date: 20241018
  Transmission Date: 20250115
  Serious: Yes (Hospitalization)
  Sender: Public
  Company Number: None

PATIENT
  Age: 66 Year
  Sex: Male

DRUGS (1)
  1. TEMOZOLOMIDE [Suspect]
     Active Substance: TEMOZOLOMIDE
     Dates: start: 20240923, end: 20241018

REACTIONS (3)
  - Psychotic disorder [None]
  - Thinking abnormal [None]
  - Fear [None]

NARRATIVE: CASE EVENT DATE: 20241018
